FAERS Safety Report 12178134 (Version 1)
Quarter: 2016Q1

REPORT INFORMATION
  Report Type: Spontaneous
  Country: DE (occurrence: DE)
  Receive Date: 20160314
  Receipt Date: 20160314
  Transmission Date: 20160526
  Serious: Yes (Other)
  Sender: FDA-Public Use
  Company Number: GXKR2016DE001293

PATIENT

DRUGS (12)
  1. NOVAMINSULFON [Concomitant]
     Active Substance: METAMIZOLE
     Indication: PAIN
     Dosage: 3000 [MG/D (BIS 2000) ]
     Route: 064
     Dates: start: 20141218, end: 20150206
  2. PROTHYRID [Concomitant]
     Active Substance: LEVOTHYROXINE SODIUM
     Indication: HYPOTHYROIDISM
     Dosage: 100 [?G/D ] / 10 [?G/D ]
     Route: 064
     Dates: start: 20141218, end: 20150910
  3. CITALOPRAM [Suspect]
     Active Substance: CITALOPRAM HYDROBROMIDE
     Indication: MIGRAINE PROPHYLAXIS
     Dosage: 40 MG, QD
     Route: 064
     Dates: start: 20141218, end: 20150910
  4. PANTOPRAZOLE [Concomitant]
     Active Substance: PANTOPRAZOLE SODIUM
     Indication: GASTROOESOPHAGEAL REFLUX DISEASE
     Dosage: 40 MG, QD
     Route: 064
     Dates: start: 20141218, end: 20150910
  5. ISLA-MOOS [Concomitant]
     Indication: TONSILLITIS
     Route: 064
  6. QUENSYL [Concomitant]
     Active Substance: HYDROXYCHLOROQUINE
     Indication: SJOGREN^S SYNDROME
     Dosage: 200 [MG/D ]
     Route: 064
     Dates: start: 20141218, end: 20150910
  7. PARACETAMOL [Concomitant]
     Active Substance: ACETAMINOPHEN
     Indication: TONSILLITIS
     Dosage: 1000 [MG/D (BEI BEDARF) ]
     Route: 064
  8. TRAMADOL. [Concomitant]
     Active Substance: TRAMADOL
     Indication: PAIN
     Dosage: 300 [MG/D (3 X 100) ]
     Route: 064
  9. ASCOTOP [Concomitant]
     Active Substance: ZOLMITRIPTAN
     Indication: MIGRAINE
     Dosage: 2.5 [MG/D (BEI BEDARF) ]
     Route: 064
     Dates: start: 20141218, end: 20150206
  10. FOLSAEURE [Concomitant]
     Active Substance: FOLIC ACID
     Indication: PROPHYLAXIS OF NEURAL TUBE DEFECT
     Route: 064
     Dates: start: 20150206, end: 20150206
  11. PREDNISOLON [Concomitant]
     Active Substance: PREDNISOLONE
     Indication: SJOGREN^S SYNDROME
     Dosage: 5 [MG/D ]
     Route: 064
     Dates: start: 20141218, end: 20150910
  12. VIGANTOLETTEN [Concomitant]
     Active Substance: CHOLECALCIFEROL
     Indication: VITAMIN D DEFICIENCY
     Dosage: 1000 [IE/D ]
     Route: 064
     Dates: start: 20141218, end: 20150910

REACTIONS (3)
  - Temperature regulation disorder [Recovered/Resolved]
  - Myoclonus [Recovered/Resolved]
  - Respiratory disorder neonatal [Recovered/Resolved]

NARRATIVE: CASE EVENT DATE: 20150910
